FAERS Safety Report 14758298 (Version 21)
Quarter: 2021Q1

REPORT INFORMATION
  Report Type: Spontaneous
  Country: CA (occurrence: CA)
  Receive Date: 20180413
  Receipt Date: 20210111
  Transmission Date: 20210419
  Serious: Yes (Other)
  Sender: FDA-Public Use
  Company Number: CA-CELLTRION INC.-2018CA018225

PATIENT

DRUGS (30)
  1. INFLECTRA [Suspect]
     Active Substance: INFLIXIMAB-DYYB
     Dosage: 580 MG (7 MG/KG), EVERY 6 WEEKS
     Route: 042
     Dates: start: 20180220, end: 20200819
  2. INFLECTRA [Suspect]
     Active Substance: INFLIXIMAB-DYYB
     Dosage: 7 MG/KG, EVERY 6 WEEKS
     Route: 042
     Dates: start: 20180517
  3. INFLECTRA [Suspect]
     Active Substance: INFLIXIMAB-DYYB
     Dosage: 7 MG/KG, EVERY 6 WEEKS
     Route: 042
     Dates: start: 20180905
  4. INFLECTRA [Suspect]
     Active Substance: INFLIXIMAB-DYYB
     Dosage: 7 MG/KG, EVERY 6 WEEKS
     Route: 042
     Dates: start: 20181122
  5. INFLECTRA [Suspect]
     Active Substance: INFLIXIMAB-DYYB
     Dosage: 7 MG/KG, EVERY 6 WEEKS
     Route: 042
     Dates: start: 20191210
  6. INFLECTRA [Suspect]
     Active Substance: INFLIXIMAB-DYYB
     Dosage: 7 MG/KG, EVERY 6 WEEKS
     Route: 042
     Dates: start: 20200819
  7. NAPROXEN. [Concomitant]
     Active Substance: NAPROXEN
     Dosage: UNK
  8. CIMZIA [Concomitant]
     Active Substance: CERTOLIZUMAB PEGOL
     Dosage: UNK
  9. INFLECTRA [Suspect]
     Active Substance: INFLIXIMAB-DYYB
     Dosage: 7 MG/KG, EVERY 6 WEEKS
     Route: 042
     Dates: start: 20190919
  10. INFLECTRA [Suspect]
     Active Substance: INFLIXIMAB-DYYB
     Dosage: 7 MG/KG, EVERY 6 WEEKS
     Route: 042
     Dates: start: 20191029
  11. INFLECTRA [Suspect]
     Active Substance: INFLIXIMAB-DYYB
     Indication: ANKYLOSING SPONDYLITIS
     Dosage: 5 MG/KG, AT 0, 2, 6, THEN EVERY 6 WEEKS
     Route: 042
     Dates: start: 20170908, end: 20180110
  12. INFLECTRA [Suspect]
     Active Substance: INFLIXIMAB-DYYB
     Dosage: 7 MG/KG, EVERY 6 WEEKS
     Route: 042
     Dates: start: 20180905
  13. INFLECTRA [Suspect]
     Active Substance: INFLIXIMAB-DYYB
     Dosage: 7 MG/KG, EVERY 6 WEEKS
     Route: 042
     Dates: start: 20200303
  14. INFLECTRA [Suspect]
     Active Substance: INFLIXIMAB-DYYB
     Dosage: 7 MG/KG, EVERY 6 WEEKS
     Route: 042
     Dates: start: 20180719
  15. INFLECTRA [Suspect]
     Active Substance: INFLIXIMAB-DYYB
     Dosage: 7 MG/KG, EVERY 6 WEEKS
     Route: 042
     Dates: start: 20190806
  16. INFLECTRA [Suspect]
     Active Substance: INFLIXIMAB-DYYB
     Dosage: 7 MG/KG, EVERY 6 WEEKS
     Route: 042
     Dates: start: 20200708
  17. INFLECTRA [Suspect]
     Active Substance: INFLIXIMAB-DYYB
     Dosage: 8 MG/KG, EVERY 6 WEEKS
     Route: 042
     Dates: start: 20200930
  18. INFLECTRA [Suspect]
     Active Substance: INFLIXIMAB-DYYB
     Dosage: 7 MG/KG, EVERY 6 WEEKS
     Route: 042
     Dates: start: 20180404
  19. INFLECTRA [Suspect]
     Active Substance: INFLIXIMAB-DYYB
     Dosage: 7 MG/KG, EVERY 6 WEEKS
     Route: 042
     Dates: start: 20181122
  20. INFLECTRA [Suspect]
     Active Substance: INFLIXIMAB-DYYB
     Dosage: 7 MG/KG, EVERY 6 WEEKS
     Route: 042
     Dates: start: 20191029
  21. INFLECTRA [Suspect]
     Active Substance: INFLIXIMAB-DYYB
     Dosage: 7 MG/KG, EVERY 6 WEEKS
     Route: 042
     Dates: start: 20200121
  22. INFLECTRA [Suspect]
     Active Substance: INFLIXIMAB-DYYB
     Dosage: 7 MG/KG, EVERY 6 WEEKS
     Route: 042
     Dates: start: 20200414
  23. SIMPONI [Concomitant]
     Active Substance: GOLIMUMAB
     Dosage: UNK
  24. INFLECTRA [Suspect]
     Active Substance: INFLIXIMAB-DYYB
     Dosage: 7 MG/KG, EVERY 6 WEEKS
     Route: 042
     Dates: start: 20180719
  25. INFLECTRA [Suspect]
     Active Substance: INFLIXIMAB-DYYB
     Dosage: 7 MG/KG, EVERY 6 WEEKS
     Route: 042
     Dates: start: 20200414
  26. INFLECTRA [Suspect]
     Active Substance: INFLIXIMAB-DYYB
     Dosage: 7 MG/KG, EVERY 6 WEEKS
     Route: 042
     Dates: start: 20200526
  27. HUMIRA [Concomitant]
     Active Substance: ADALIMUMAB
     Dosage: UNK
  28. INFLECTRA [Suspect]
     Active Substance: INFLIXIMAB-DYYB
     Dosage: 7 MG/KG, EVERY 6 WEEKS
     Route: 042
     Dates: start: 20180719
  29. INFLECTRA [Suspect]
     Active Substance: INFLIXIMAB-DYYB
     Dosage: 7 MG/KG, EVERY 6 WEEKS
     Route: 042
     Dates: start: 20190625
  30. COSENTYX [Concomitant]
     Active Substance: SECUKINUMAB
     Dosage: UNK

REACTIONS (13)
  - Pain [Recovering/Resolving]
  - Hypertension [Not Recovered/Not Resolved]
  - Blood pressure fluctuation [Unknown]
  - Arthralgia [Not Recovered/Not Resolved]
  - Off label use [Unknown]
  - Condition aggravated [Recovered/Resolved]
  - Carpal tunnel syndrome [Not Recovered/Not Resolved]
  - Diarrhoea [Recovering/Resolving]
  - Gait disturbance [Unknown]
  - Intentional product use issue [Unknown]
  - Meniscus injury [Recovering/Resolving]
  - Thrombosis [Unknown]
  - Off label use [Unknown]

NARRATIVE: CASE EVENT DATE: 2018
